FAERS Safety Report 6978893-3 (Version None)
Quarter: 2010Q3

REPORT INFORMATION
  Report Type: 
  Country: None (occurrence: None)
  Receive Date: 20100913
  Receipt Date: 20100909
  Transmission Date: 20110219
  Serious: Yes (Hospitalization)
  Sender: FDA-Public Use
  Company Number: US-CEPHALON-2010004804

PATIENT
  Sex: Female

DRUGS (1)
  1. PROVIGIL [Suspect]
     Indication: SOMNOLENCE
     Route: 048
     Dates: start: 20090909

REACTIONS (2)
  - OXYGEN SATURATION DECREASED [None]
  - PNEUMONIA [None]
